FAERS Safety Report 21516635 (Version 1)
Quarter: 2022Q4

REPORT INFORMATION
  Report Type: Spontaneous
  Country: US (occurrence: None)
  Receive Date: 20221027
  Receipt Date: 20221027
  Transmission Date: 20230113
  Serious: No
  Sender: FDA-Public Use
  Company Number: None

PATIENT
  Age: 78 Year
  Sex: Female
  Weight: 83.73 kg

DRUGS (18)
  1. IBRANCE [Suspect]
     Active Substance: PALBOCICLIB
     Indication: Breast cancer
     Dosage: OTHER FREQUENCY : 21D ON 7D OFF;?
     Route: 048
     Dates: start: 20220913
  2. ALBUTEROL [Concomitant]
  3. BCOMPLEX [Concomitant]
  4. CALCIUM CITRATE [Concomitant]
     Active Substance: CALCIUM CITRATE
  5. CLARITIN [Concomitant]
     Active Substance: LORATADINE
  6. COMPRAZINE [Concomitant]
  7. CRANBERRY [Concomitant]
     Active Substance: CRANBERRY
  8. FASLODEX [Concomitant]
     Active Substance: FULVESTRANT
  9. FULVESTRANT [Concomitant]
     Active Substance: FULVESTRANT
  10. LOSARTAN [Concomitant]
     Active Substance: LOSARTAN
  11. OMEGA3 [Concomitant]
  12. ONDANSETRON [Concomitant]
     Active Substance: ONDANSETRON
  13. MINERALS\VITAMINS [Concomitant]
     Active Substance: MINERALS\VITAMINS
  14. REFRESH PLUS OPTHALMIC [Concomitant]
  15. VITAMIN D3 [Concomitant]
     Active Substance: CHOLECALCIFEROL
  16. XGEVA [Concomitant]
     Active Substance: DENOSUMAB
  17. XYLITOL [Concomitant]
     Active Substance: XYLITOL
  18. ZARXIO [Concomitant]
     Active Substance: FILGRASTIM-SNDZ

REACTIONS (1)
  - Full blood count abnormal [None]
